FAERS Safety Report 16786453 (Version 1)
Quarter: 2019Q3

REPORT INFORMATION
  Report Type: Spontaneous
  Country: DE (occurrence: DE)
  Receive Date: 20190909
  Receipt Date: 20190909
  Transmission Date: 20191005
  Serious: Yes (Hospitalization, Other)
  Sender: FDA-Public Use
  Company Number: DE-OTSUKA-2019_031491

PATIENT
  Sex: Male

DRUGS (2)
  1. SAMSCA [Suspect]
     Active Substance: TOLVAPTAN
     Dosage: 3.75 MG, UNK
     Route: 065
  2. SAMSCA [Suspect]
     Active Substance: TOLVAPTAN
     Indication: INAPPROPRIATE ANTIDIURETIC HORMONE SECRETION
     Dosage: 15 MG, UNK
     Route: 065

REACTIONS (8)
  - Cerebrovascular accident [Unknown]
  - Pyrexia [Unknown]
  - Haemorrhage intracranial [Unknown]
  - Blood sodium decreased [Unknown]
  - Heart rate increased [Unknown]
  - Dehydration [Unknown]
  - Underdose [Unknown]
  - Wrong technique in product usage process [Unknown]
